FAERS Safety Report 6262041-1 (Version None)
Quarter: 2009Q3

REPORT INFORMATION
  Report Type: 
  Country: None (occurrence: None)
  Receive Date: 20090709
  Receipt Date: 20090705
  Transmission Date: 20100115
  Serious: Yes (Death)
  Sender: FDA-Public Use
  Company Number: JP-BAXTER-2009BH010336

PATIENT
  Age: 47 Year
  Sex: Male

DRUGS (9)
  1. ENDOXAN BAXTER [Suspect]
     Indication: IMMUNOSUPPRESSION
     Route: 042
     Dates: start: 20060407, end: 20060414
  2. METHYLPREDNISOLONE ACETATE [Suspect]
     Indication: IMMUNOSUPPRESSION
     Route: 042
     Dates: start: 20060407
  3. TACROLIMUS [Suspect]
     Indication: IMMUNOSUPPRESSION
     Route: 048
     Dates: start: 20060407, end: 20080129
  4. TACROLIMUS [Suspect]
     Route: 048
     Dates: start: 20080129, end: 20080129
  5. MYCOPHENOLATE MOFETIL [Suspect]
     Indication: IMMUNOSUPPRESSION
     Route: 048
     Dates: start: 20060415, end: 20070209
  6. MYCOPHENOLATE MOFETIL [Suspect]
     Route: 048
     Dates: start: 20070209, end: 20070209
  7. RINDERON [Suspect]
     Indication: IMMUNOSUPPRESSION
     Route: 042
     Dates: start: 20060407, end: 20080129
  8. PROSTAGLANDIN E1 [Concomitant]
     Indication: HEPATIC NEOPLASM MALIGNANT
     Route: 014
  9. FOY [Concomitant]
     Indication: HEPATIC NEOPLASM MALIGNANT
     Route: 042

REACTIONS (1)
  - HEPATIC NEOPLASM MALIGNANT RECURRENT [None]
